FAERS Safety Report 9257116 (Version 1)
Quarter: 2013Q2

REPORT INFORMATION
  Report Type: Spontaneous
  Country: CN (occurrence: None)
  Receive Date: 20130424
  Receipt Date: 20130424
  Transmission Date: 20140414
  Serious: Yes (Death, Hospitalization)
  Sender: FDA-Public Use
  Company Number: 2013-121

PATIENT
  Age: 22 Year
  Sex: Male

DRUGS (1)
  1. CLOZAPINE [Suspect]
     Indication: SCHIZOPHRENIA
     Route: 048
     Dates: end: 2007

REACTIONS (13)
  - Multi-organ failure [None]
  - Hypotension [None]
  - Portal vein thrombosis [None]
  - Grand mal convulsion [None]
  - Upper gastrointestinal haemorrhage [None]
  - Superior sagittal sinus thrombosis [None]
  - Transverse sinus thrombosis [None]
  - Papilloedema [None]
  - Cerebral thrombosis [None]
  - Haemorrhagic infarction [None]
  - Status epilepticus [None]
  - Deep vein thrombosis [None]
  - Coma [None]
